FAERS Safety Report 5099499-X (Version None)
Quarter: 2006Q3

REPORT INFORMATION
  Report Type: 
  Country: None (occurrence: None)
  Receive Date: 20060908
  Receipt Date: 20060828
  Transmission Date: 20061208
  Serious: Yes (Other)
  Sender: FDA-Public Use
  Company Number: US-JNJFOC-20060806202

PATIENT
  Age: 67 Year
  Sex: Male
  Weight: 86.18 kg

DRUGS (4)
  1. PEPCID AC [Suspect]
  2. PEPCID AC [Suspect]
     Indication: DRUG USE FOR UNKNOWN INDICATION
  3. CRESTOR [Interacting]
     Indication: DRUG USE FOR UNKNOWN INDICATION
  4. GAS-X EXTRA STRENGTH SOFTGELS [Concomitant]
     Indication: FLATULENCE
     Route: 048

REACTIONS (2)
  - BLOOD CHOLESTEROL INCREASED [None]
  - DRUG INTERACTION [None]
